FAERS Safety Report 7934594 (Version 2)
Quarter: 2013Q4

REPORT INFORMATION
  Report Type: Spontaneous
  Country: US (occurrence: US)
  Receive Date: 20110509
  Receipt Date: 20131128
  Transmission Date: 20140711
  Serious: No
  Sender: FDA-Public Use
  Company Number: US-JNJFOC-20110407234

PATIENT
  Age: 55 Year
  Sex: Male
  Weight: 86.18 kg

DRUGS (3)
  1. SANDOZ FENTANYL [Suspect]
     Indication: PAIN
     Route: 062
     Dates: start: 2006, end: 201104
  2. DURAGESIC [Suspect]
     Indication: PAIN
     Route: 062
     Dates: start: 2006, end: 201104
  3. HYDROCODONE [Concomitant]
     Indication: BREAKTHROUGH PAIN
     Route: 048

REACTIONS (6)
  - Product adhesion issue [Unknown]
  - Pain [Recovered/Resolved]
  - Blood cholesterol increased [Recovered/Resolved]
  - Wrong technique in drug usage process [Recovered/Resolved]
  - Product quality issue [Unknown]
  - Product physical issue [Unknown]
